FAERS Safety Report 5792954-6 (Version None)
Quarter: 2008Q2

REPORT INFORMATION
  Report Type: 
  Country: None (occurrence: None)
  Receive Date: 20080627
  Receipt Date: 20080618
  Transmission Date: 20081010
  Serious: Yes (Hospitalization)
  Sender: FDA-Public Use
  Company Number: NL-AMGEN-US285210

PATIENT
  Sex: Female

DRUGS (7)
  1. ENBREL [Suspect]
     Indication: RHEUMATOID ARTHRITIS
     Route: 058
     Dates: start: 20020101
  2. METHOTREXATE [Suspect]
     Indication: RHEUMATOID ARTHRITIS
     Route: 048
     Dates: start: 19960101
  3. PLAQUENIL [Concomitant]
     Indication: RHEUMATOID ARTHRITIS
     Route: 048
  4. ACETAMINOPHEN [Concomitant]
     Indication: PAIN
     Route: 065
  5. FOLIC ACID [Concomitant]
     Indication: RHEUMATOID ARTHRITIS
     Route: 065
  6. TRAMADOL HCL [Concomitant]
     Indication: PAIN
     Route: 065
  7. CELEBREX [Concomitant]
     Indication: RHEUMATOID ARTHRITIS
     Dosage: 100 MG 2 TO 3 TIMES A DAYS
     Route: 065

REACTIONS (2)
  - HEART VALVE INCOMPETENCE [None]
  - SKIN PAPILLOMA [None]
